FAERS Safety Report 5228645-X (Version None)
Quarter: 2007Q1

REPORT INFORMATION
  Report Type: 
  Country: None (occurrence: None)
  Receive Date: 20070205
  Receipt Date: 20070130
  Transmission Date: 20070707
  Serious: Yes (Other)
  Sender: FDA-Public Use
  Company Number: US-GLAXOSMITHKLINE-A0637645A

PATIENT
  Age: 36 Year
  Sex: Female

DRUGS (6)
  1. PAXIL CR [Suspect]
     Dosage: 25MG PER DAY
     Route: 048
     Dates: start: 20010101
  2. COLD MEDICATION [Concomitant]
  3. ALLERGY MEDICATION [Concomitant]
  4. LORATADINE [Concomitant]
  5. ANTI-DIARRHEAL [Concomitant]
  6. DULCOLAX [Concomitant]

REACTIONS (6)
  - AGGRESSION [None]
  - CRYING [None]
  - DRUG DEPENDENCE [None]
  - DRUG WITHDRAWAL SYNDROME [None]
  - IRRITABILITY [None]
  - PARAESTHESIA [None]
